FAERS Safety Report 8341475-5 (Version None)
Quarter: 2012Q2

REPORT INFORMATION
  Report Type: 
  Country: None (occurrence: None)
  Receive Date: 20120507
  Receipt Date: 20100118
  Transmission Date: 20120825
  Serious: No
  Sender: FDA-Public Use
  Company Number: US-TEVA-2010000231

PATIENT
  Sex: Male
  Weight: 97.156 kg

DRUGS (7)
  1. FIBERWISE [Concomitant]
  2. GARLIC [Concomitant]
  3. ALLOPURINOL [Concomitant]
  4. IBUPROFEN TABLETS [Concomitant]
  5. RUTIN [Concomitant]
  6. VITAMIN C [Concomitant]
  7. TREANDA [Suspect]
     Indication: CHRONIC LYMPHOCYTIC LEUKAEMIA
     Route: 042

REACTIONS (3)
  - BLOOD URIC ACID INCREASED [None]
  - BLOOD UREA INCREASED [None]
  - BLOOD CREATININE INCREASED [None]
